FAERS Safety Report 17178674 (Version 1)
Quarter: 2019Q4

REPORT INFORMATION
  Report Type: Spontaneous
  Country: US (occurrence: US)
  Receive Date: 20191219
  Receipt Date: 20191219
  Transmission Date: 20200122
  Serious: Yes (Death, Hospitalization)
  Sender: FDA-Public Use
  Company Number: US-B.I. PHARMACEUTICALS,INC./RIDGEFIELD-2019-BI-120639

PATIENT
  Age: 81 Year
  Sex: Male

DRUGS (7)
  1. OXYCODONE [Concomitant]
     Active Substance: OXYCODONE
     Indication: PRODUCT USED FOR UNKNOWN INDICATION
     Dosage: PRN, PREOP: TAKE IF NEEDED
     Route: 048
  2. CYMBALTA [Concomitant]
     Active Substance: DULOXETINE HYDROCHLORIDE
     Indication: PRODUCT USED FOR UNKNOWN INDICATION
     Dosage: CYMBALTA 60 MG ORAL DELAYED RELEASE CAPSULE, 60MG = 1 CAP PO, QHS. , PREOP: TAKE AS USUAL
     Route: 048
  3. LYRICA [Concomitant]
     Active Substance: PREGABALIN
     Indication: PRODUCT USED FOR UNKNOWN INDICATION
     Dosage: LYRICA 75 MG ORAL CAPSULE, 75 MG= 1 CAP, PO, BID, PREOP: TAKE WITH SIP OF WATER
     Route: 048
  4. PRAXBIND [Suspect]
     Active Substance: IDARUCIZUMAB
     Indication: PROCOAGULANT THERAPY
     Dosage: IV PUSH, 2.5 G= 50 ML, IV PUSH, Q_10MIN.
     Route: 042
  5. ROPINIROLE. [Concomitant]
     Active Substance: ROPINIROLE
     Indication: PRODUCT USED FOR UNKNOWN INDICATION
     Dosage: 2 MG= 1 TAB, PO, BID, PREOP: TAKE WITH SIP OF WATER
     Route: 048
  6. TRAZODONE [Concomitant]
     Active Substance: TRAZODONE HYDROCHLORIDE
     Indication: PRODUCT USED FOR UNKNOWN INDICATION
     Dosage: TRAZODONE 150 MG ORAL TABLET, 150 MG= 1 TAB, PO, QHS, PREOP: TAKE AS USUAL
     Route: 048
  7. FENTANYL. [Concomitant]
     Active Substance: FENTANYL
     Indication: PRODUCT USED FOR UNKNOWN INDICATION
     Dosage: EXTENDED RELEASE, 1 PATCH, TOPICAL, Q72H TIMED, PREOP: TAKE AS USUAL
     Route: 061

REACTIONS (1)
  - Cerebral haemorrhage [Fatal]

NARRATIVE: CASE EVENT DATE: 20170320
